FAERS Safety Report 7807350-7 (Version None)
Quarter: 2011Q4

REPORT INFORMATION
  Report Type: 
  Country: None (occurrence: None)
  Receive Date: 20111011
  Receipt Date: 20111007
  Transmission Date: 20120403
  Serious: Yes (Other)
  Sender: FDA-Public Use
  Company Number: JP-PFIZER INC-2011239369

PATIENT
  Age: 75 Year
  Sex: Male

DRUGS (6)
  1. LYRICA [Suspect]
     Dosage: 300 MG/DAY
     Route: 048
     Dates: start: 20110214, end: 20110812
  2. LYRICA [Suspect]
     Dosage: 300 MG/DAY
     Route: 048
     Dates: start: 20110909, end: 20111007
  3. DIOVAN [Concomitant]
     Dosage: 80 MG/DAY
     Route: 048
     Dates: start: 20110209
  4. LYRICA [Suspect]
     Indication: POST HERPETIC NEURALGIA
     Dosage: 150 MG/DAY
     Route: 048
     Dates: start: 20110209
  5. BISOPROLOL FUMARATE [Concomitant]
     Dosage: 2.5 MG/DAY
     Route: 048
     Dates: start: 20110209
  6. ATELEC [Concomitant]
     Dosage: 20 MG/DAY
     Route: 048
     Dates: start: 20110209

REACTIONS (1)
  - BRADYCARDIA [None]
